FAERS Safety Report 4620869-5 (Version None)
Quarter: 2005Q1

REPORT INFORMATION
  Report Type: 
  Country: None (occurrence: None)
  Receive Date: 20050325
  Receipt Date: 20050317
  Transmission Date: 20050727
  Serious: Yes (Hospitalization)
  Sender: FDA-Public Use
  Company Number: MK200503-0238-1

PATIENT
  Age: 23 Year
  Sex: Male

DRUGS (1)
  1. METHADOSE [Suspect]
     Indication: DRUG DEPENDENCE
     Dosage: UNK

REACTIONS (6)
  - BLOOD PRESSURE DIASTOLIC DECREASED [None]
  - DRUG EFFECT DECREASED [None]
  - HYPOVENTILATION [None]
  - LETHARGY [None]
  - OVERDOSE [None]
  - PULSE PRESSURE DECREASED [None]
